FAERS Safety Report 8556022-2 (Version None)
Quarter: 2012Q3

REPORT INFORMATION
  Report Type: 
  Country: None (occurrence: None)
  Receive Date: 20120719
  Receipt Date: 20120709
  Transmission Date: 20120928
  Serious: Yes (Death, Hospitalization, Disabling, Other)
  Sender: FDA-Public Use
  Company Number: 2012MA008456

PATIENT
  Age: 65 Year
  Sex: Male
  Weight: 82 kg

DRUGS (5)
  1. RITUXIMAB (RITUXIMAB) [Suspect]
     Indication: CHRONIC LYMPHOCYTIC LEUKAEMIA
     Dosage: 500 MG/M^2; DAY 14
  2. CHLORAMBUCIL [Concomitant]
  3. CYCLOPHOSPHAMIDE [Suspect]
     Indication: CHRONIC LYMPHOCYTIC LEUKAEMIA
     Dosage: 150 MG/M^2; DAY 1-3
  4. FLECAINIDE ACETATE [Concomitant]
  5. FLUDARABINE PHOSPHATE [Suspect]
     Indication: CHRONIC LYMPHOCYTIC LEUKAEMIA
     Dosage: 20 MG/M^2; DAY 1-3

REACTIONS (8)
  - INCONTINENCE [None]
  - ARRHYTHMIA SUPRAVENTRICULAR [None]
  - PROGRESSIVE MULTIFOCAL LEUKOENCEPHALOPATHY [None]
  - HEMIPARESIS [None]
  - DEMYELINATION [None]
  - SOMNOLENCE [None]
  - JC VIRUS INFECTION [None]
  - BLINDNESS [None]
